FAERS Safety Report 8723045 (Version 5)
Quarter: 2012Q4

REPORT INFORMATION
  Report Type: 
  Country: US (occurrence: US)
  Receive Date: 20120814
  Receipt Date: 20121231
  Transmission Date: 20130627
  Serious: Yes (Death)
  Sender: FDA-Public Use
  Company Number: US-JNJFOC-20120805177

PATIENT

DRUGS (8)
  1. DOXORUBICIN [Suspect]
     Indication: ACUTE LYMPHOCYTIC LEUKAEMIA
     Dosage: on day 1 over 15-30 minutes
     Route: 042
  2. BORTEZOMIB [Suspect]
     Indication: ACUTE LYMPHOCYTIC LEUKAEMIA
     Dosage: 1.3 mg/sq.m/dose on days 1, 4, 8 and 11 combined with VXLD
     Route: 042
  3. VINCRISTINE [Suspect]
     Indication: ACUTE LYMPHOCYTIC LEUKAEMIA
     Dosage: 1.5 mg/m2/dose, max. 2 mg, by push on days 1, 8, 15 and 22
     Route: 042
  4. DEXAMETHASONE [Suspect]
     Indication: ACUTE LYMPHOCYTIC LEUKAEMIA
     Dosage: 10 mg/m2/day divided in to 2 doses for 14 consecutive days
     Route: 048
  5. PEG-ASPARAGINASE [Suspect]
     Indication: ACUTE LYMPHOCYTIC LEUKAEMIA
     Dosage: 2500 units/m2/dose as 4 weekly doses
     Route: 030
  6. CYTARABINE [Suspect]
     Indication: ACUTE LYMPHOCYTIC LEUKAEMIA
     Dosage: on day 1 for all patients and on days 8, 15, 22 for CNS invlovment
     Route: 037
  7. METHOTREXATE [Suspect]
     Indication: ACUTE LYMPHOCYTIC LEUKAEMIA
     Dosage: 1 dose on day 15 for no CNS involvement and on days 8, 15, 22 for CNS involvement
     Route: 037
  8. HYDROCORTISONE [Suspect]
     Indication: ACUTE LYMPHOCYTIC LEUKAEMIA
     Dosage: on days 8, 15 and 22
     Route: 037

REACTIONS (4)
  - Cerebral ischaemia [Fatal]
  - Sepsis [Fatal]
  - Multi-organ failure [Fatal]
  - Off label use [Recovered/Resolved]
